FAERS Safety Report 18059646 (Version 1)
Quarter: 2020Q3

REPORT INFORMATION
  Report Type: Spontaneous
  Country: US (occurrence: US)
  Receive Date: 20200722
  Receipt Date: 20200722
  Transmission Date: 20201103
  Serious: Yes (Hospitalization)
  Sender: FDA-Public Use
  Company Number: None

PATIENT
  Sex: Female

DRUGS (7)
  1. PROGESTERONE. [Suspect]
     Active Substance: PROGESTERONE
  2. FOLIC ACID. [Suspect]
     Active Substance: FOLIC ACID
  3. PROBIOTIC [Suspect]
     Active Substance: PROBIOTICS NOS
  4. HUMIRA [Suspect]
     Active Substance: ADALIMUMAB
     Dosage: ?          OTHER FREQUENCY:Q 14 DAYS;?
     Route: 058
     Dates: start: 20180112
  5. ESTROGEL [Suspect]
     Active Substance: ESTRADIOL
  6. MULTIPLE VIT [Concomitant]
  7. BUSPIRONE [Suspect]
     Active Substance: BUSPIRONE HYDROCHLORIDE

REACTIONS (3)
  - Abdominal pain [None]
  - Impaired quality of life [None]
  - Condition aggravated [None]
